FAERS Safety Report 5963519 (Version 2)
Quarter: 2014Q1

REPORT INFORMATION
  Report Type: Spontaneous
  Country: JP (occurrence: None)
  Receive Date: 20060106
  Receipt Date: 20140314
  Transmission Date: 20141002
  Serious: Yes (Hospitalization)
  Sender: FDA-Public Use
  Company Number: 2005JP002254

PATIENT
  Age: 7 Year
  Sex: Female
  Weight: 25 kg

DRUGS (15)
  1. PROGRAF [Suspect]
     Indication: BONE MARROW TRANSPLANT
     Dosage: 0.02 MG/KG, UID/QD, IV DRIP
     Route: 041
     Dates: start: 20050215, end: 20050220
  2. METHOTREXATE [Concomitant]
  3. GAMMAGARD [Concomitant]
  4. FIRSTCIN (CEFOZOPRAN HYDROCHLORIDE) INJECTION [Concomitant]
  5. FOSFLUCONAZOLE [Concomitant]
  6. BETAMIPRON\PANIPENEM [Concomitant]
  7. TOBRACIN (TOBRAMYCIN SULFATE) INJECTION [Concomitant]
  8. ALBUMIN (ALBUMIN HUMAN) INJECTION [Concomitant]
  9. SOLITA-T1 INJECTION (GLUCOSE, SODIUM LACTATE, SODIUM CHLORIDE) INJECTION [Concomitant]
  10. FULCALIQ [Concomitant]
  11. URSO (URSODEOXYCHOLIC ACID) GRANULE [Concomitant]
  12. VANCOMYCIN (VANCOMYCIN) POWDER [Concomitant]
  13. POLYMYXIN B SULFATE (POLYMYXIN B SULFATE) POWDER [Concomitant]
  14. SOLU-MEDROL [Concomitant]
  15. LASIX (FUROSEMIDE) INJECTION [Concomitant]

REACTIONS (13)
  - Posterior reversible encephalopathy syndrome [None]
  - Weight increased [None]
  - Cardiomegaly [None]
  - Pleural effusion [None]
  - Pulmonary oedema [None]
  - Oxygen saturation decreased [None]
  - Blood pH decreased [None]
  - PCO2 increased [None]
  - Mydriasis [None]
  - Hypoventilation [None]
  - Cardiac failure [None]
  - Respiratory depression [None]
  - Visual acuity reduced [None]
